FAERS Safety Report 19012829 (Version 1)
Quarter: 2021Q1

REPORT INFORMATION
  Report Type: Spontaneous
  Country: US (occurrence: US)
  Receive Date: 20210316
  Receipt Date: 20210316
  Transmission Date: 20210420
  Serious: Yes (Hospitalization)
  Sender: FDA-Public Use
  Company Number: None

PATIENT
  Age: 68 Year
  Sex: Male
  Weight: 87.91 kg

DRUGS (8)
  1. PEMBROLIZUMAB, 200MG [Suspect]
     Active Substance: PEMBROLIZUMAB
     Indication: PROSTATE CANCER
     Dosage: ?          OTHER FREQUENCY:EVERY 3 WEEKS;?
     Route: 042
     Dates: start: 20201026, end: 20210119
  2. IBUPROFEN. [Concomitant]
     Active Substance: IBUPROFEN
  3. ACETAMINOPHEN. [Concomitant]
     Active Substance: ACETAMINOPHEN
  4. DOCUSTATE [Concomitant]
  5. ENZALUTAMIDE, 160MG [Concomitant]
     Active Substance: ENZALUTAMIDE
     Indication: PROSTATE CANCER
     Route: 048
     Dates: start: 20201026, end: 20210222
  6. ELIGARD [Concomitant]
     Active Substance: LEUPROLIDE ACETATE
  7. OXYBUTIN CHLORIDE [Concomitant]
  8. OXYCODONE HCI [Concomitant]
     Active Substance: OXYCODONE HYDROCHLORIDE

REACTIONS (5)
  - Blood culture negative [None]
  - Pyrexia [None]
  - Chills [None]
  - Delirium [None]
  - Sepsis [None]

NARRATIVE: CASE EVENT DATE: 20210304
